FAERS Safety Report 21416872 (Version 2)
Quarter: 2022Q4

REPORT INFORMATION
  Report Type: Spontaneous
  Country: TW (occurrence: None)
  Receive Date: 20221006
  Receipt Date: 20221013
  Transmission Date: 20230113
  Serious: Yes (Other)
  Sender: FDA-Public Use
  Company Number: TW-ROCHE-3189532

PATIENT
  Age: 61 Year
  Sex: Female

DRUGS (1)
  1. ALECTINIB [Suspect]
     Active Substance: ALECTINIB
     Indication: Non-small cell lung cancer
     Route: 065

REACTIONS (7)
  - Rash [Unknown]
  - Myalgia [Unknown]
  - Fatigue [Unknown]
  - Headache [Unknown]
  - Vision blurred [Unknown]
  - Constipation [Unknown]
  - Pulmonary embolism [Unknown]
